FAERS Safety Report 5913112-8 (Version None)
Quarter: 2008Q4

REPORT INFORMATION
  Report Type: 
  Country: None (occurrence: None)
  Receive Date: 20081008
  Receipt Date: 20081008
  Transmission Date: 20090506
  Serious: Yes (Other)
  Sender: FDA-Public Use
  Company Number: None

PATIENT
  Sex: Female
  Weight: 127.0072 kg

DRUGS (1)
  1. FEMARA [Suspect]
     Indication: BREAST CANCER
     Dosage: 1 PILL PER DAY
     Dates: start: 20080501

REACTIONS (3)
  - MENORRHAGIA [None]
  - UTERINE DISORDER [None]
  - WEIGHT INCREASED [None]
